FAERS Safety Report 9165190 (Version 5)
Quarter: 2016Q4

REPORT INFORMATION
  Report Type: Report from Study
  Country: AU (occurrence: AU)
  Receive Date: 20130315
  Receipt Date: 20161027
  Transmission Date: 20170207
  Serious: Yes (Other)
  Sender: FDA-Public Use
  Company Number: AU-009507513-1303AUS006833

PATIENT
  Age: 35 Year
  Sex: Female

DRUGS (4)
  1. PEGASYS [Suspect]
     Active Substance: PEGINTERFERON ALFA-2A
  2. RIBAVIRIN. [Suspect]
     Active Substance: RIBAVIRIN
  3. PEGATRON [Suspect]
     Active Substance: PEGINTERFERON ALFA-2B\RIBAVIRIN
     Dosage: UNK
  4. VICTRELIS [Suspect]
     Active Substance: BOCEPREVIR
     Dosage: DOSE UNSPEC
     Route: 048

REACTIONS (2)
  - Overdose [Unknown]
  - Maternal exposure during pregnancy [Unknown]

NARRATIVE: CASE EVENT DATE: 201302
